FAERS Safety Report 4717920-0 (Version None)
Quarter: 2005Q3

REPORT INFORMATION
  Report Type: 
  Country: None (occurrence: None)
  Receive Date: 20050718
  Receipt Date: 20050207
  Transmission Date: 20060218
  Serious: No
  Sender: FDA-Public Use
  Company Number: 2005000285

PATIENT
  Age: 68 Year
  Sex: Male
  Weight: 77.1115 kg

DRUGS (8)
  1. TARCEVA [Suspect]
     Indication: NON-SMALL CELL LUNG CANCER
     Dosage: 150 MG (QD), ORAL
     Route: 048
     Dates: start: 20041230, end: 20050114
  2. TARCEVA [Suspect]
     Indication: NON-SMALL CELL LUNG CANCER
     Dosage: 150 MG (QD), ORAL
     Route: 048
     Dates: start: 20050119, end: 20050210
  3. PAROXETINE HYDROCHLORIDE [Concomitant]
  4. ASPIRIN [Concomitant]
  5. MULTI-VITAMINS [Concomitant]
  6. LANSOPRAZOLE [Concomitant]
  7. ATORVASTATIN CALCIUM [Concomitant]
  8. LORAZEPAM [Concomitant]

REACTIONS (2)
  - HAEMOGLOBIN INCREASED [None]
  - RASH [None]
